FAERS Safety Report 8811278 (Version 3)
Quarter: 2013Q1

REPORT INFORMATION
  Report Type: Report from Study
  Country: JP (occurrence: JP)
  Receive Date: 20120927
  Receipt Date: 20130125
  Transmission Date: 20140127
  Serious: Yes (Hospitalization)
  Sender: FDA-Public Use
  Company Number: JP-VERTEX PHARMACEUTICAL INC.-AE-2012-006551

PATIENT
  Age: 70 Year
  Sex: Female

DRUGS (19)
  1. VX-950 (TELAPREVIR) [Suspect]
     Indication: CHRONIC HEPATITIS C
     Dosage: 1500 MG, QD
     Route: 048
     Dates: start: 20120314, end: 20120605
  2. RIBAVIRIN [Suspect]
     Indication: CHRONIC HEPATITIS C
     Dosage: 400 MG, QD
     Route: 048
     Dates: start: 20120314, end: 20120404
  3. RIBAVIRIN [Suspect]
     Dosage: 200 MG, QD
     Route: 048
     Dates: start: 20120405, end: 20120828
  4. PEGINTERFERON ALFA-2B [Suspect]
     Indication: CHRONIC HEPATITIS C
     Dosage: 1.5 ?G/KG, QW
     Route: 058
     Dates: start: 20120314, end: 20120822
  5. SELBEX [Concomitant]
     Dosage: 1.5 G, QD
     Route: 048
     Dates: end: 20120828
  6. URSO                               /00465701/ [Concomitant]
     Dosage: 600 MG, QD
     Route: 048
     Dates: start: 20110811
  7. LOXONIN [Concomitant]
     Dosage: 60 MG, PRN
     Route: 048
     Dates: start: 20120314
  8. LOXONIN [Concomitant]
     Dosage: UNK, PRN
     Route: 048
  9. JUZENTAIHOTO [Concomitant]
     Dosage: 3 PACK, QD
     Route: 048
     Dates: start: 20120314
  10. ZYLORIC [Concomitant]
     Dosage: 100 MG, QD
     Route: 048
     Dates: start: 20120317
  11. NEXIUM                             /01479302/ [Concomitant]
     Dosage: 20 MG, QD
     Route: 048
     Dates: start: 20120725, end: 20120821
  12. NORVASC OD [Concomitant]
     Dosage: 5 MG, QD
     Route: 048
     Dates: end: 20120424
  13. DEPAS [Concomitant]
     Dosage: 0.5 MG, QD
     Route: 048
  14. DEPAS [Concomitant]
     Route: 048
  15. LENDEM [Concomitant]
     Dosage: 0.25 MG, QD
     Route: 048
  16. LENDEM [Concomitant]
     Route: 048
  17. LENDORMIN [Concomitant]
     Dosage: 0.25 MG, QD
     Route: 048
  18. NAUZELIN [Concomitant]
     Dosage: 10 MG, PRN
     Route: 048
  19. MYSER                              /01249201/ [Concomitant]
     Dosage: UNK, PRN
     Route: 061

REACTIONS (3)
  - Psychiatric symptom [Recovered/Resolved]
  - Decreased appetite [Recovered/Resolved]
  - Nausea [Recovered/Resolved]
